FAERS Safety Report 17778036 (Version 1)
Quarter: 2020Q2

REPORT INFORMATION
  Report Type: Report from Study
  Country: US (occurrence: US)
  Receive Date: 20200513
  Receipt Date: 20200513
  Transmission Date: 20200714
  Serious: Yes (Death, Hospitalization)
  Sender: FDA-Public Use
  Company Number: US-MYLANLABS-2020M1046870

PATIENT
  Age: 28 Year
  Sex: Female
  Weight: 65 kg

DRUGS (11)
  1. DOPAMINE [Suspect]
     Active Substance: DOPAMINE HYDROCHLORIDE
     Indication: PULMONARY ARTERIAL HYPERTENSION
     Dosage: 5 MICROGRAM/KILOGRAM, QMINUTE, DURING PREGNANCY
     Route: 065
  2. FUROSEMIDE. [Suspect]
     Active Substance: FUROSEMIDE
     Indication: PULMONARY ARTERIAL HYPERTENSION
     Dosage: 5 MILLIGRAM
     Route: 042
  3. TREPROSTINIL. [Suspect]
     Active Substance: TREPROSTINIL
     Dosage: TITRATED UP TO A MAXIMUM DOSAGE OF 25NG/KG/MINUTE
     Route: 042
  4. DOPAMINE [Suspect]
     Active Substance: DOPAMINE HYDROCHLORIDE
     Dosage: 6 MICROGRAM/KILOGRAM, QMINUTE, AFTER DELIVERY
     Route: 065
  5. DIGOXIN. [Suspect]
     Active Substance: DIGOXIN
     Indication: PULMONARY ARTERIAL HYPERTENSION
     Dosage: 0.25 MILLIGRAM, QD
     Route: 065
  6. SILDENAFIL. [Suspect]
     Active Substance: SILDENAFIL
     Indication: PULMONARY ARTERIAL HYPERTENSION
     Dosage: 75 MILLIGRAM, QD
     Route: 048
  7. ILOPROST. [Suspect]
     Active Substance: ILOPROST
     Indication: PULMONARY ARTERIAL HYPERTENSION
     Dosage: 4 MICROGRAM
  8. NOREPINEPHRINE. [Suspect]
     Active Substance: NOREPINEPHRINE
     Indication: PULMONARY ARTERIAL HYPERTENSION
     Dosage: 0.03 MICROGRAM/KILOGRAM, QMINUTE, DURING PREGNANCY
     Route: 065
  9. TREPROSTINIL. [Suspect]
     Active Substance: TREPROSTINIL
     Indication: PULMONARY ARTERIAL HYPERTENSION
     Dosage: 1.25NG/KG/MINUTE
     Route: 042
  10. NOREPINEPHRINE. [Suspect]
     Active Substance: NOREPINEPHRINE
     Dosage: 0.9 MICROGRAM/KILOGRAM, QMINUTE, AFTER DELIVERY
     Route: 065
  11. DOBUTAMINE [Suspect]
     Active Substance: DOBUTAMINE HYDROCHLORIDE
     Indication: PULMONARY ARTERIAL HYPERTENSION
     Dosage: 20 MICROGRAM/KILOGRAM, QMINUTE
     Route: 065

REACTIONS (2)
  - Maternal exposure during pregnancy [Recovered/Resolved]
  - Drug ineffective [Fatal]
